FAERS Safety Report 5421244-6 (Version None)
Quarter: 2007Q3

REPORT INFORMATION
  Report Type: 
  Country: None (occurrence: None)
  Receive Date: 20070817
  Receipt Date: 20070810
  Transmission Date: 20080115
  Serious: Yes (Hospitalization)
  Sender: FDA-Public Use
  Company Number: 2007S1000201

PATIENT
  Age: 81 Year
  Sex: Female

DRUGS (2)
  1. SORIATANE [Suspect]
     Indication: PSORIASIS
     Dosage: 10 MG; BID; PO
     Route: 048
     Dates: start: 20070727, end: 20070802
  2. BUMEX [Concomitant]

REACTIONS (4)
  - ABNORMAL BEHAVIOUR [None]
  - DEEP VEIN THROMBOSIS [None]
  - DRY SKIN [None]
  - SKIN CHAPPED [None]
